FAERS Safety Report 7772797-4 (Version None)
Quarter: 2011Q3

REPORT INFORMATION
  Report Type: 
  Country: None (occurrence: None)
  Receive Date: 20110922
  Receipt Date: 20100811
  Transmission Date: 20111222
  Serious: No
  Sender: FDA-Public Use
  Company Number: US-ASTRAZENECA-2008UW04287

PATIENT
  Age: 27 Year
  Sex: Female
  Weight: 81.6 kg

DRUGS (11)
  1. PERCOCET [Concomitant]
     Dosage: 325 MG-5 MG, 1 TAB, 6 HRLY
     Dates: start: 20070418
  2. ZOLOFT [Concomitant]
     Route: 048
     Dates: start: 20011212
  3. SEROQUEL [Suspect]
     Route: 048
     Dates: start: 20010501, end: 20010901
  4. FERROUS SULFATE TAB [Concomitant]
     Dates: start: 20050504
  5. SUDAFED 12 HOUR [Concomitant]
     Dosage: 2 TIMES A DAY
     Dates: start: 20070606
  6. SEROQUEL [Suspect]
     Dosage: 25MG-100MG DAILY
     Route: 048
     Dates: start: 20011028
  7. ALESSE [Concomitant]
     Dates: start: 20011029
  8. TOPAMAX [Concomitant]
     Dates: start: 20011029
  9. PROZAC [Concomitant]
     Dates: start: 20011028
  10. SEROQUEL [Suspect]
     Indication: DEPRESSION
     Route: 048
     Dates: start: 20010501, end: 20011201
  11. LEXAPRO [Concomitant]
     Dates: start: 20070606

REACTIONS (5)
  - TYPE 2 DIABETES MELLITUS [None]
  - WEIGHT INCREASED [None]
  - DIABETIC COMPLICATION [None]
  - DIABETES MELLITUS [None]
  - BLOOD GLUCOSE ABNORMAL [None]
